FAERS Safety Report 8082361-8 (Version None)
Quarter: 2012Q1

REPORT INFORMATION
  Report Type: 
  Country: None (occurrence: None)
  Receive Date: 20120127
  Receipt Date: 20110217
  Transmission Date: 20120608
  Serious: No
  Sender: FDA-Public Use
  Company Number: US-ABBOTT-11P-163-0706025-00

PATIENT
  Age: 58 Year
  Sex: Female

DRUGS (9)
  1. HUMIRA [Suspect]
     Indication: PSORIASIS
     Dates: start: 20101228
  2. ESTRADIOL [Concomitant]
     Indication: HORMONE REPLACEMENT THERAPY
  3. VITAMIN D [Concomitant]
  4. ALIGN PRO BIOTIC OTC [Concomitant]
     Indication: GASTROOESOPHAGEAL REFLUX DISEASE
  5. ASPIRIN [Concomitant]
     Indication: ATHEROSCLEROSIS PROPHYLAXIS
  6. CITALOPRAM [Concomitant]
     Indication: STRESS
  7. VITAMIN D [Concomitant]
     Indication: VITAMIN SUPPLEMENTATION
  8. VITAMIN E [Concomitant]
     Indication: PRODUCT USED FOR UNKNOWN INDICATION
  9. DELILANT [Concomitant]
     Indication: GASTROOESOPHAGEAL REFLUX DISEASE

REACTIONS (1)
  - INJECTION SITE PAIN [None]
